FAERS Safety Report 6542392-3 (Version None)
Quarter: 2010Q1

REPORT INFORMATION
  Report Type: 
  Country: None (occurrence: None)
  Receive Date: 20100114
  Receipt Date: 20100114
  Transmission Date: 20100710
  Serious: Yes (Other)
  Sender: FDA-Public Use
  Company Number: None

PATIENT
  Age: 40 Year
  Sex: Male
  Weight: 82.5 kg

DRUGS (2)
  1. ARALAST [Suspect]
     Indication: ALPHA-1 ANTI-TRYPSIN DEFICIENCY
     Dosage: 5240MG  WEEKLY IV DRIP
     Route: 041
     Dates: start: 20100106, end: 20100106
  2. ARALAST [Suspect]
     Indication: ALPHA-1 ANTI-TRYPSIN DEFICIENCY
     Dosage: 5240MG  WEEKLY IV DRIP
     Route: 041
     Dates: start: 20100113, end: 20100113

REACTIONS (2)
  - INFUSION RELATED REACTION [None]
  - LUNG DISORDER [None]
